FAERS Safety Report 7683281-0 (Version None)
Quarter: 2011Q3

REPORT INFORMATION
  Report Type: 
  Country: None (occurrence: None)
  Receive Date: 20110815
  Receipt Date: 20110726
  Transmission Date: 20111222
  Serious: Yes (Hospitalization)
  Sender: FDA-Public Use
  Company Number: US-GLAXOSMITHKLINE-A0886527A

PATIENT
  Sex: Male

DRUGS (16)
  1. SOTALOL HCL [Concomitant]
  2. NEXIUM [Concomitant]
  3. AVANDIA [Suspect]
     Indication: DIABETES MELLITUS
     Route: 048
     Dates: end: 20070101
  4. COUMADIN [Concomitant]
  5. ASPIRIN [Concomitant]
  6. HYDROCHLOROTHIAZIDE [Concomitant]
  7. ZANTAC [Concomitant]
  8. NITROGLYCERIN [Concomitant]
  9. UNIVASC [Concomitant]
  10. TOPROL-XL [Concomitant]
  11. LIPITOR [Concomitant]
  12. TRAMADOL HCL [Concomitant]
  13. FLOMAX [Concomitant]
  14. GLUCOPHAGE [Concomitant]
  15. MICROZIDE [Concomitant]
  16. PHENERGAN HCL [Concomitant]

REACTIONS (8)
  - CARDIOVASCULAR DISORDER [None]
  - CARDIAC FAILURE CONGESTIVE [None]
  - TRANSIENT ISCHAEMIC ATTACK [None]
  - CAROTID ARTERY DISEASE [None]
  - CORONARY ARTERY DISEASE [None]
  - ATRIAL FIBRILLATION [None]
  - CARDIAC DISORDER [None]
  - CORONARY ARTERY BYPASS [None]
